FAERS Safety Report 7128858-6 (Version None)
Quarter: 2010Q4

REPORT INFORMATION
  Report Type: 
  Country: None (occurrence: None)
  Receive Date: 20101130
  Receipt Date: 20101117
  Transmission Date: 20110411
  Serious: Yes (Death, Hospitalization)
  Sender: FDA-Public Use
  Company Number: A0798035A

PATIENT
  Sex: Male

DRUGS (1)
  1. AVANDIA [Suspect]
     Indication: DIABETES MELLITUS
     Route: 048
     Dates: end: 20061001

REACTIONS (13)
  - ANGINA PECTORIS [None]
  - AORTIC DISSECTION [None]
  - AORTIC STENOSIS [None]
  - CARDIAC DISORDER [None]
  - CONDITION AGGRAVATED [None]
  - CORONARY ARTERY DISEASE [None]
  - HYPOXIC-ISCHAEMIC ENCEPHALOPATHY [None]
  - MITRAL VALVE INCOMPETENCE [None]
  - OEDEMA [None]
  - TRICUSPID VALVE INCOMPETENCE [None]
  - VENTRICULAR HYPERTROPHY [None]
  - VOMITING [None]
  - WEIGHT INCREASED [None]
